FAERS Safety Report 9052251 (Version 2)
Quarter: 2013Q1

REPORT INFORMATION
  Report Type: Spontaneous
  Country: BR (occurrence: BR)
  Receive Date: 20130206
  Receipt Date: 20130213
  Transmission Date: 20140127
  Serious: Yes (Hospitalization, Other)
  Sender: FDA-Public Use
  Company Number: PHHY2013BR005652

PATIENT
  Age: 72 None
  Sex: Male
  Weight: 50 kg

DRUGS (8)
  1. ONBREZ [Suspect]
     Indication: CHRONIC OBSTRUCTIVE PULMONARY DISEASE
     Dosage: 300 UG, UNK
  2. ONBREZ [Suspect]
     Dosage: 150 UG, BID
  3. ONBREZ [Suspect]
     Dosage: 300 UG, QD
  4. IPRATROPIUM [Suspect]
     Indication: DYSPNOEA
     Dosage: 20 DRP, PRN
     Dates: start: 20130116
  5. FENOTEROL [Suspect]
     Indication: DYSPNOEA
     Dosage: 5 DRP, PRN
     Dates: start: 20130116
  6. CENTRUM [Concomitant]
  7. ACETYL CYSTEINE [Concomitant]
  8. VACCINES [Concomitant]
     Dosage: UNK
     Dates: start: 201207

REACTIONS (7)
  - Pneumonia [Recovered/Resolved]
  - Chronic obstructive pulmonary disease [Not Recovered/Not Resolved]
  - Dyspnoea [Recovering/Resolving]
  - Insomnia [Not Recovered/Not Resolved]
  - Drug prescribing error [Unknown]
  - Cough [Not Recovered/Not Resolved]
  - Lung disorder [Not Recovered/Not Resolved]
